FAERS Safety Report 15429690 (Version 1)
Quarter: 2018Q3

REPORT INFORMATION
  Report Type: Report from Study
  Country: US (occurrence: US)
  Receive Date: 20180926
  Receipt Date: 20180926
  Transmission Date: 20181010
  Serious: Yes (Hospitalization, Other)
  Sender: FDA-Public Use
  Company Number: US-BAUSCH-BL-2018-026289

PATIENT
  Age: 57 Year
  Sex: Female

DRUGS (1)
  1. XIFAXAN [Suspect]
     Active Substance: RIFAXIMIN
     Indication: PRODUCT USED FOR UNKNOWN INDICATION
     Route: 048

REACTIONS (4)
  - Hepatic failure [Unknown]
  - Hospitalisation [Recovered/Resolved]
  - Hospice care [Unknown]
  - Pneumonia [Unknown]

NARRATIVE: CASE EVENT DATE: 20180907
